FAERS Safety Report 16060092 (Version 21)
Quarter: 2020Q2

REPORT INFORMATION
  Report Type: Report from Study
  Country: None (occurrence: NL)
  Receive Date: 20190312
  Receipt Date: 20200611
  Transmission Date: 20200713
  Serious: Yes (Other)
  Sender: FDA-Public Use
  Company Number: NL-ABBVIE-19S-114-2697037-00

PATIENT
  Sex: Male
  Weight: 71.6 kg

DRUGS (17)
  1. DUODOPA [Suspect]
     Active Substance: CARBIDOPA\LEVODOPA
     Dosage: INCREASED CONTINUOUS DOSE BY 0.1 ML/HR TO 4.0 ML/HR
     Route: 050
  2. DUODOPA [Suspect]
     Active Substance: CARBIDOPA\LEVODOPA
     Dosage: MDD 9.5 CD 4.2 ED 3.0 NIGHT: CD 3.8
     Route: 050
     Dates: start: 2019
  3. DUODOPA [Suspect]
     Active Substance: CARBIDOPA\LEVODOPA
     Dosage: MDD 9.5 CD 4.2 ED 3.0 NIGHT: CD 4
     Route: 050
  4. SILVER NITRATE. [Concomitant]
     Active Substance: SILVER NITRATE
     Indication: STOMA SITE REACTION
  5. DUODOPA [Suspect]
     Active Substance: CARBIDOPA\LEVODOPA
     Dosage: MD 9.5, CDD 3.9, CDN 3.8, ED 3.0
     Route: 050
  6. MACROGOL [Concomitant]
     Active Substance: POLYETHYLENE GLYCOLS
     Indication: ABNORMAL FAECES
  7. DUODOPA [Suspect]
     Active Substance: CARBIDOPA\LEVODOPA
     Dosage: MD 3.5 MORNING DOSE IS DECREASED WITH 2.0 CD FOR THE NIGHT IS DECREASED WITH 0.3ML.
     Route: 050
  8. DUODOPA [Suspect]
     Active Substance: CARBIDOPA\LEVODOPA
     Dosage: CD: 4.2
     Route: 050
     Dates: start: 20191008, end: 2019
  9. DUODOPA [Suspect]
     Active Substance: CARBIDOPA\LEVODOPA
     Dosage: MDD 9.5 CD 4.2 ED 3.0 CND: 3.8; 24 HOUR ADMINISTRATION
     Route: 050
  10. QUETIAPINE. [Concomitant]
     Active Substance: QUETIAPINE
     Indication: PRODUCT USED FOR UNKNOWN INDICATION
     Dosage: DOSE INCREASED
     Dates: start: 202005
  11. DUODOPA [Suspect]
     Active Substance: CARBIDOPA\LEVODOPA
     Dosage: ND IS INCREASED WITH 0.3ML
     Route: 050
  12. DUODOPA [Suspect]
     Active Substance: CARBIDOPA\LEVODOPA
     Dosage: CD 4.4 EXTRA DOSE 3.0.
     Route: 050
  13. DUODOPA [Suspect]
     Active Substance: CARBIDOPA\LEVODOPA
     Dosage: MD 9.0, CD 4.8, ED 3.0/ ED 4 TIMES A DAY
     Route: 050
  14. NEUPRO [Suspect]
     Active Substance: ROTIGOTINE
     Indication: PRODUCT USED FOR UNKNOWN INDICATION
     Route: 065
  15. DUODOPA [Suspect]
     Active Substance: CARBIDOPA\LEVODOPA
     Indication: PARKINSON^S DISEASE
     Dosage: MD: 11.5, CD: 3.9, ED: 3.0?16 HOUR ADMINISTRATION
     Route: 050
     Dates: start: 20181008
  16. DUODOPA [Suspect]
     Active Substance: CARBIDOPA\LEVODOPA
     Dosage: CONTINUOUS NIGHT DOSE HAS BEEN INCREASED AGAIN WITH 0.3 ML TO 2.6, CD NIGHT 3.2
     Route: 050
  17. RIVASTIGMIN [Concomitant]
     Active Substance: RIVASTIGMINE
     Indication: PRODUCT USED FOR UNKNOWN INDICATION
     Dates: start: 201909

REACTIONS (44)
  - Cognitive disorder [Not Recovered/Not Resolved]
  - Feeling abnormal [Recovered/Resolved]
  - Parkinsonian gait [Unknown]
  - Lymphocytic leukaemia [Not Recovered/Not Resolved]
  - Urinary tract infection [Not Recovered/Not Resolved]
  - Bradykinesia [Not Recovered/Not Resolved]
  - Parkinson^s disease [Not Recovered/Not Resolved]
  - Freezing phenomenon [Not Recovered/Not Resolved]
  - Infrequent bowel movements [Unknown]
  - Muscle spasms [Not Recovered/Not Resolved]
  - Gait disturbance [Not Recovered/Not Resolved]
  - Fear [Unknown]
  - On and off phenomenon [Recovered/Resolved]
  - Device issue [Recovered/Resolved]
  - Feeling abnormal [Not Recovered/Not Resolved]
  - Loss of personal independence in daily activities [Not Recovered/Not Resolved]
  - Dementia [Not Recovered/Not Resolved]
  - Insomnia [Recovered/Resolved]
  - Unevaluable event [Not Recovered/Not Resolved]
  - Therapeutic product effect variable [Unknown]
  - Dyskinesia [Recovering/Resolving]
  - Sleep disorder [Recovered/Resolved]
  - Hallucination, visual [Not Recovered/Not Resolved]
  - Stoma site erythema [Unknown]
  - Device dislocation [Unknown]
  - Tension [Not Recovered/Not Resolved]
  - Freezing phenomenon [Recovered/Resolved]
  - Muscle rigidity [Not Recovered/Not Resolved]
  - Dyskinesia [Recovered/Resolved]
  - Hyperkinesia [Not Recovered/Not Resolved]
  - On and off phenomenon [Unknown]
  - Stoma site inflammation [Unknown]
  - Memory impairment [Not Recovered/Not Resolved]
  - Hallucination [Not Recovered/Not Resolved]
  - Stress [Not Recovered/Not Resolved]
  - Stoma site discharge [Not Recovered/Not Resolved]
  - Device issue [Unknown]
  - Muscular weakness [Not Recovered/Not Resolved]
  - Compulsions [Not Recovered/Not Resolved]
  - Fibroma [Not Recovered/Not Resolved]
  - Fibroma [Recovered/Resolved]
  - Medical device pain [Not Recovered/Not Resolved]
  - Mobility decreased [Recovering/Resolving]
  - Suspiciousness [Not Recovered/Not Resolved]

NARRATIVE: CASE EVENT DATE: 2020
